FAERS Safety Report 20129303 (Version 2)
Quarter: 2022Q1

REPORT INFORMATION
  Report Type: Report from Study
  Country: GB (occurrence: GB)
  Receive Date: 20211130
  Receipt Date: 20220126
  Transmission Date: 20220423
  Serious: Yes (Other)
  Sender: FDA-Public Use
  Company Number: GB-IPSEN Group, Research and Development-2021-14313

PATIENT
  Age: 63 Year
  Sex: Male

DRUGS (1)
  1. LANREOTIDE ACETATE [Suspect]
     Active Substance: LANREOTIDE ACETATE
     Indication: Neuroendocrine tumour
     Dosage: 60MG/0.3ML
     Route: 058
     Dates: start: 2021

REACTIONS (10)
  - Circulatory collapse [Unknown]
  - Flushing [Unknown]
  - Stress [Unknown]
  - Diarrhoea [Unknown]
  - Muscular weakness [Unknown]
  - Dizziness [Unknown]
  - Off label use [Unknown]
  - Drug ineffective [Unknown]
  - Off label use [Unknown]
  - Product availability issue [Unknown]

NARRATIVE: CASE EVENT DATE: 20210101
